FAERS Safety Report 22944980 (Version 2)
Quarter: 2023Q4

REPORT INFORMATION
  Report Type: Spontaneous
  Country: US (occurrence: US)
  Receive Date: 20230914
  Receipt Date: 20231023
  Transmission Date: 20240110
  Serious: No
  Sender: FDA-Public Use
  Company Number: US-PFIZER INC-PV202300098924

PATIENT
  Age: 77 Year
  Sex: Female
  Weight: 77.098 kg

DRUGS (1)
  1. IBRANCE [Suspect]
     Active Substance: PALBOCICLIB
     Dosage: 125 MG, CYCLIC (1-21 OF A 28 DAY)
     Route: 048

REACTIONS (3)
  - Hypoacusis [Unknown]
  - Memory impairment [Unknown]
  - Brain fog [Unknown]
